FAERS Safety Report 7993565-4 (Version None)
Quarter: 2011Q4

REPORT INFORMATION
  Report Type: 
  Country: None (occurrence: None)
  Receive Date: 20111219
  Receipt Date: 20111212
  Transmission Date: 20120403
  Serious: Yes (Death)
  Sender: FDA-Public Use
  Company Number: US-GILEAD-2011-0048091

PATIENT
  Age: 46 Year
  Sex: Male

DRUGS (3)
  1. LETAIRIS [Suspect]
     Indication: PRODUCT USED FOR UNKNOWN INDICATION
     Dosage: 10 MG,
     Route: 048
     Dates: start: 20090310, end: 20111212
  2. REMODULIN [Concomitant]
  3. REVATIO [Concomitant]

REACTIONS (1)
  - DEATH [None]
